FAERS Safety Report 14785810 (Version 5)
Quarter: 2018Q3

REPORT INFORMATION
  Report Type: Spontaneous
  Country: US (occurrence: US)
  Receive Date: 20180420
  Receipt Date: 20180817
  Transmission Date: 20181010
  Serious: Yes (Other)
  Sender: FDA-Public Use
  Company Number: US-PFIZER INC-2018163445

PATIENT
  Age: 69 Year
  Sex: Female
  Weight: 70 kg

DRUGS (18)
  1. IBRANCE [Suspect]
     Active Substance: PALBOCICLIB
     Indication: BREAST CANCER METASTATIC
     Dosage: 100 MG, 1X/DAY
     Route: 048
     Dates: start: 201710
  2. VITAMIN B12 [Concomitant]
     Active Substance: CYANOCOBALAMIN
     Indication: SUPPLEMENTATION THERAPY
     Dosage: 50 MG, 1X/DAY
     Route: 048
     Dates: start: 2015
  3. IBRANCE [Suspect]
     Active Substance: PALBOCICLIB
     Dosage: UNK
     Dates: end: 20180330
  4. IBRANCE [Suspect]
     Active Substance: PALBOCICLIB
     Dosage: 100 MG, DAILY
     Route: 048
     Dates: start: 20171121
  5. FASLODEX [Concomitant]
     Active Substance: FULVESTRANT
     Indication: ADJUVANT THERAPY
     Dosage: UNK
     Dates: start: 201711
  6. IBRANCE [Suspect]
     Active Substance: PALBOCICLIB
     Dosage: 100 MG, CYCLIC (ONCE A DAY FOR 21 DAYS ON AND 7 DAYS OFF)
     Dates: start: 201712
  7. IBRANCE [Suspect]
     Active Substance: PALBOCICLIB
     Dosage: 100 MG, 1X/DAY
     Route: 048
     Dates: start: 2018
  8. ZOMETA [Concomitant]
     Active Substance: ZOLEDRONIC ACID
     Dosage: UNK
     Dates: start: 20180712
  9. IBRANCE [Suspect]
     Active Substance: PALBOCICLIB
     Dosage: 125 MG, CYCLIC (FOR 21 DAYS ON AND 7 DAYS OFF)
     Dates: start: 201711
  10. ZOMETA [Concomitant]
     Active Substance: ZOLEDRONIC ACID
     Indication: MINERAL SUPPLEMENTATION
     Dosage: UNK, MONTHLY
     Route: 042
  11. FASLODEX [Concomitant]
     Active Substance: FULVESTRANT
     Indication: HER-2 POSITIVE BREAST CANCER
     Dosage: 500 MG, MONTHLY [2 INJECTIONS, ONE IN EACH BUTT CHEEKS]
  12. VITAMIN D3 [Concomitant]
     Active Substance: CHOLECALCIFEROL
     Indication: SUPPLEMENTATION THERAPY
     Dosage: 1000 UG, DAILY
  13. CALCIUM W/MAGNESIUM/ZINC [Concomitant]
     Indication: SUPPLEMENTATION THERAPY
     Dosage: 1000 MG, 1X/DAY
     Route: 048
  14. IBRANCE [Suspect]
     Active Substance: PALBOCICLIB
     Indication: HER-2 POSITIVE BREAST CANCER
     Dosage: 125 MG, UNK
     Route: 048
     Dates: start: 201710
  15. VITAMIN C [Concomitant]
     Active Substance: ASCORBIC ACID
     Indication: SUPPLEMENTATION THERAPY
     Dosage: 1000 MG, DAILY
     Route: 048
  16. VITAMIN D3 [Concomitant]
     Active Substance: CHOLECALCIFEROL
     Dosage: 1000 IU, 1X/DAY
     Route: 048
  17. ZOMETA [Concomitant]
     Active Substance: ZOLEDRONIC ACID
     Indication: BREAST CANCER METASTATIC
     Dosage: UNK
     Dates: start: 201711
  18. FASLODEX [Concomitant]
     Active Substance: FULVESTRANT
     Indication: BREAST CANCER METASTATIC
     Dosage: UNK
     Dates: start: 20180712

REACTIONS (9)
  - White blood cell count decreased [Unknown]
  - Decreased appetite [Recovered/Resolved]
  - Fatigue [Recovered/Resolved]
  - Leukopenia [Recovering/Resolving]
  - Neoplasm progression [Unknown]
  - Loss of personal independence in daily activities [Recovered/Resolved]
  - Paraesthesia [Unknown]
  - Product use in unapproved indication [Unknown]
  - Musculoskeletal discomfort [Unknown]

NARRATIVE: CASE EVENT DATE: 2017
